FAERS Safety Report 15083008 (Version 1)
Quarter: 2018Q2

REPORT INFORMATION
  Report Type: Spontaneous
  Country: US (occurrence: US)
  Receive Date: 20180607
  Receipt Date: 20180607
  Transmission Date: 20180711
  Serious: Yes (Disabling, Other)
  Sender: FDA-Public Use
  Company Number: None

PATIENT
  Age: 35 Year
  Sex: Female
  Weight: 102 kg

DRUGS (23)
  1. STRESS B COMPLEX VITAMIN [Concomitant]
  2. ONE A DAY WOMEN^S MULTI VITAMIN [Concomitant]
  3. CYMBALTA [Concomitant]
     Active Substance: DULOXETINE HYDROCHLORIDE
  4. ASPIRIN. [Concomitant]
     Active Substance: ASPIRIN
  5. INTERSTEM DEVICE [Concomitant]
  6. METOPROLOL ER [Concomitant]
     Active Substance: METOPROLOL SUCCINATE
  7. OMEPRAZOLE. [Concomitant]
     Active Substance: OMEPRAZOLE
  8. VITAMIN D3 [Concomitant]
     Active Substance: CHOLECALCIFEROL
  9. KENALOG [Suspect]
     Active Substance: TRIAMCINOLONE ACETONIDE
     Indication: MULTIPLE ALLERGIES
     Dosage: ?          QUANTITY:1 DF DOSAGE FORM;?
     Route: 030
     Dates: start: 20180531
  10. XANX [Concomitant]
  11. ABILIFY [Concomitant]
     Active Substance: ARIPIPRAZOLE
  12. SINGULAIR [Concomitant]
     Active Substance: MONTELUKAST SODIUM
  13. PROMETHAZINE HCL [Concomitant]
     Active Substance: PROMETHAZINE HYDROCHLORIDE
  14. ADVIL [Concomitant]
     Active Substance: IBUPROFEN
  15. TYLENOL [Concomitant]
     Active Substance: ACETAMINOPHEN
  16. PREMARIN [Concomitant]
     Active Substance: ESTROGENS, CONJUGATED
  17. BUPROPION HYDROCHLORIDE XL [Concomitant]
     Active Substance: BUPROPION HYDROCHLORIDE
  18. TIZANIDINE HCL [Concomitant]
     Active Substance: TIZANIDINE HYDROCHLORIDE
  19. ADDERALL [Concomitant]
     Active Substance: AMPHETAMINE ASPARTATE\AMPHETAMINE SULFATE\DEXTROAMPHETAMINE SACCHARATE\DEXTROAMPHETAMINE SULFATE
  20. SYNTHROID [Concomitant]
     Active Substance: LEVOTHYROXINE SODIUM
  21. CETIRIZINE [Concomitant]
     Active Substance: CETIRIZINE HYDROCHLORIDE
  22. FUROSEMIDE. [Concomitant]
     Active Substance: FUROSEMIDE
  23. RISPERIDONE. [Concomitant]
     Active Substance: RISPERIDONE

REACTIONS (17)
  - Peripheral swelling [None]
  - Tremor [None]
  - Cough [None]
  - Palpitations [None]
  - Partner stress [None]
  - Anxiety [None]
  - Drug interaction [None]
  - Headache [None]
  - Nausea [None]
  - Suicidal ideation [None]
  - Asthenia [None]
  - Irritability [None]
  - Chest discomfort [None]
  - Depression [None]
  - Crying [None]
  - Wheezing [None]
  - Impatience [None]

NARRATIVE: CASE EVENT DATE: 20180602
